FAERS Safety Report 12984518 (Version 1)
Quarter: 2016Q4

REPORT INFORMATION
  Report Type: Spontaneous
  Country: US (occurrence: US)
  Receive Date: 20161129
  Receipt Date: 20161129
  Transmission Date: 20170207
  Serious: Yes (Other)
  Sender: FDA-Public Use
  Company Number: US-TEVA-715087USA

PATIENT
  Age: 62 Year
  Sex: Male

DRUGS (5)
  1. ADENOSINE. [Suspect]
     Active Substance: ADENOSINE
     Indication: FRACTIONAL FLOW RESERVE
     Dosage: 72MICROG
     Route: 022
  2. SODIUM CHLORIDE. [Suspect]
     Active Substance: SODIUM CHLORIDE
     Indication: FRACTIONAL FLOW RESERVE
     Dosage: 24 MICROG/ML NORMAL SALINE FOLLOWED BY A SALINE FLUSH
     Route: 022
  3. HEPARIN [Concomitant]
     Active Substance: HEPARIN SODIUM
     Indication: ACUTE MYOCARDIAL INFARCTION
     Route: 041
  4. ADENOSINE. [Suspect]
     Active Substance: ADENOSINE
     Indication: FRACTIONAL FLOW RESERVE
     Dosage: 72MICROG FOLLOWED BY ADDITIONAL 96MICROG
     Route: 022
  5. SODIUM CHLORIDE. [Suspect]
     Active Substance: SODIUM CHLORIDE
     Indication: FRACTIONAL FLOW RESERVE
     Dosage: 24 MICROG/ML NORMAL SALINE FOLLOWED BY A 15CM3 SALINE FLUSH
     Route: 022

REACTIONS (2)
  - Ventricular tachycardia [Recovered/Resolved]
  - Ventricular fibrillation [Recovered/Resolved]
